FAERS Safety Report 18331560 (Version 1)
Quarter: 2020Q3

REPORT INFORMATION
  Report Type: Spontaneous
  Country: NL (occurrence: NL)
  Receive Date: 20200930
  Receipt Date: 20200930
  Transmission Date: 20201103
  Serious: Yes (Life-Threatening, Other)
  Sender: FDA-Public Use
  Company Number: NL-AMGEN-NLDSP2020156016

PATIENT
  Age: 65 Year
  Sex: Female
  Weight: 57 kg

DRUGS (2)
  1. PERTUZUMAB. [Suspect]
     Active Substance: PERTUZUMAB
     Indication: NON-SMALL CELL LUNG CANCER
     Dosage: 420 MILLIGRAM, Q3WK
     Route: 042
     Dates: start: 20200408
  2. TRASTUZUMAB. [Suspect]
     Active Substance: TRASTUZUMAB
     Indication: NON-SMALL CELL LUNG CANCER
     Dosage: 432 MILLIGRAM, Q3WK
     Route: 042
     Dates: start: 20200408

REACTIONS (3)
  - Off label use [Unknown]
  - Diarrhoea [Unknown]
  - Disease progression [Not Recovered/Not Resolved]

NARRATIVE: CASE EVENT DATE: 20200408
